FAERS Safety Report 19794923 (Version 4)
Quarter: 2021Q4

REPORT INFORMATION
  Report Type: Spontaneous
  Country: US (occurrence: US)
  Receive Date: 20210907
  Receipt Date: 20211215
  Transmission Date: 20220303
  Serious: Yes (Other)
  Sender: FDA-Public Use
  Company Number: US-BEH-2021135555

PATIENT
  Age: 53 Year
  Sex: Female

DRUGS (8)
  1. HIZENTRA [Suspect]
     Active Substance: HUMAN IMMUNOGLOBULIN G
     Indication: Immunodeficiency
     Dosage: 10 GRAM, BIW
     Route: 058
     Dates: start: 20210702
  2. HIZENTRA [Suspect]
     Active Substance: HUMAN IMMUNOGLOBULIN G
     Indication: Primary immunodeficiency syndrome
     Dosage: UNK
     Route: 058
  3. HIZENTRA [Suspect]
     Active Substance: HUMAN IMMUNOGLOBULIN G
     Dosage: 10 GRAM, QW
     Route: 058
     Dates: start: 20210702
  4. HIZENTRA [Suspect]
     Active Substance: HUMAN IMMUNOGLOBULIN G
     Dosage: 10 GRAM, QOW
     Route: 058
     Dates: start: 20210628
  5. PRIVIGEN [Suspect]
     Active Substance: HUMAN IMMUNOGLOBULIN G
     Dosage: UNK
     Route: 042
     Dates: start: 2014
  6. TYLENOL 8HR [Concomitant]
     Active Substance: ACETAMINOPHEN
     Indication: Premedication
     Route: 065
  7. LORATADINE\PSEUDOEPHEDRINE SULFATE [Concomitant]
     Active Substance: LORATADINE\PSEUDOEPHEDRINE SULFATE
     Indication: Premedication
     Route: 065
  8. KEFLEX [Concomitant]
     Active Substance: CEPHALEXIN
     Indication: Prophylaxis
     Dosage: UNK, QD
     Route: 065
     Dates: start: 202110

REACTIONS (15)
  - Sinusitis [Unknown]
  - Urinary tract infection [Unknown]
  - Meningitis aseptic [Unknown]
  - Headache [Unknown]
  - Hypersomnia [Recovered/Resolved]
  - Headache [Recovered/Resolved]
  - Myalgia [Recovered/Resolved]
  - Fatigue [Recovered/Resolved]
  - Surgery [Unknown]
  - Cystitis interstitial [Unknown]
  - Pollakiuria [Unknown]
  - Biopsy vagina abnormal [Unknown]
  - Fatigue [Recovering/Resolving]
  - Hypersomnia [Unknown]
  - Immunoglobulins decreased [Unknown]

NARRATIVE: CASE EVENT DATE: 20210628
